FAERS Safety Report 5842432-0 (Version None)
Quarter: 2008Q3

REPORT INFORMATION
  Report Type: 
  Country: None (occurrence: None)
  Receive Date: 20080731
  Receipt Date: 20080626
  Transmission Date: 20090109
  Serious: No
  Sender: FDA-Public Use
  Company Number: US200806006459

PATIENT
  Age: 66 Year
  Sex: Female

DRUGS (6)
  1. BYETTA [Suspect]
     Indication: TYPE 2 DIABETES MELLITUS
     Dosage: 5 UG, 2/D, SUBCUTANEOUS
     Route: 058
     Dates: start: 20071201
  2. EXENATIDE 5MCG PEN, DISPOSABLE DEVICE (EXENATIDE PEN (5MCG)) PEN,DISPO [Concomitant]
  3. GLUCOPHAGE [Concomitant]
  4. MEDOCOR (ISOSORBIDE MONONITRATE) [Concomitant]
  5. ZESTRIL [Concomitant]
  6. AVASTIN [Concomitant]

REACTIONS (2)
  - ALBUMIN URINE PRESENT [None]
  - CREATININE URINE INCREASED [None]
